FAERS Safety Report 5915608-1 (Version None)
Quarter: 2008Q4

REPORT INFORMATION
  Report Type: 
  Country: None (occurrence: None)
  Receive Date: 20081010
  Receipt Date: 20080929
  Transmission Date: 20090506
  Serious: Yes (Other)
  Sender: FDA-Public Use
  Company Number: CA-PFIZER INC-2008082010

PATIENT
  Age: 44 Year
  Sex: Female
  Weight: 106 kg

DRUGS (1)
  1. SU-011,248 [Suspect]
     Indication: ADENOCARCINOMA OF THE CERVIX
     Dosage: DAILY DOSE:50MG-FREQ:ONCE DAILY FOR 4 WEEKS
     Route: 048
     Dates: start: 20070424, end: 20070712

REACTIONS (1)
  - GASTROINTESTINAL FISTULA [None]
